FAERS Safety Report 11026511 (Version 1)
Quarter: 2015Q2

REPORT INFORMATION
  Report Type: Spontaneous
  Country: US (occurrence: US)
  Receive Date: 20150414
  Receipt Date: 20150414
  Transmission Date: 20150821
  Serious: No
  Sender: FDA-Public Use
  Company Number: US-PFIZER INC-2015122915

PATIENT
  Age: 86 Year
  Sex: Male
  Weight: 65.76 kg

DRUGS (1)
  1. LYRICA [Suspect]
     Active Substance: PREGABALIN
     Indication: NEURALGIA
     Dosage: 50 MG, 2X/DAY
     Route: 048
     Dates: start: 20150121

REACTIONS (5)
  - Amnesia [Unknown]
  - Coordination abnormal [Unknown]
  - Hypokinesia [Unknown]
  - Diarrhoea [Unknown]
  - Drug ineffective [Unknown]
